FAERS Safety Report 23128780 (Version 1)
Quarter: 2023Q4

REPORT INFORMATION
  Report Type: Report from Study
  Country: MY (occurrence: MY)
  Receive Date: 20231031
  Receipt Date: 20231031
  Transmission Date: 20240109
  Serious: Yes (Other)
  Sender: FDA-Public Use
  Company Number: MY-JNJFOC-20231053620

PATIENT
  Age: 52 Year
  Sex: Male

DRUGS (4)
  1. BORTEZOMIB [Suspect]
     Active Substance: BORTEZOMIB
     Indication: Product used for unknown indication
     Dosage: UNK
     Route: 065
  2. DEXAMETHASONE [Suspect]
     Active Substance: DEXAMETHASONE
     Indication: Product used for unknown indication
     Dosage: UNK
     Route: 065
  3. DARZALEX [Suspect]
     Active Substance: DARATUMUMAB
     Indication: Product used for unknown indication
     Dosage: UNK
     Route: 065
  4. THALIDOMIDE [Suspect]
     Active Substance: THALIDOMIDE
     Indication: Product used for unknown indication
     Dosage: UNK
     Route: 065

REACTIONS (2)
  - Disease progression [Unknown]
  - Drug ineffective [Unknown]
